FAERS Safety Report 16668177 (Version 1)
Quarter: 2019Q3

REPORT INFORMATION
  Report Type: Spontaneous
  Country: CH (occurrence: CH)
  Receive Date: 20190805
  Receipt Date: 20190805
  Transmission Date: 20191004
  Serious: Yes (Hospitalization)
  Sender: FDA-Public Use
  Company Number: PHHY2019CH176991

PATIENT
  Age: 60 Year
  Sex: Male

DRUGS (2)
  1. TILUR [Suspect]
     Active Substance: ACEMETACIN
     Indication: BACK PAIN
     Dosage: 1 DF, BID (NOT KNOWN HOW LONG EXACTLY THE PATIENT HAD BEEN TAKING THE DRUG)
     Route: 048
     Dates: start: 2019
  2. VOLTAREN [Suspect]
     Active Substance: DICLOFENAC SODIUM
     Indication: BACK PAIN
     Dosage: 50 MG, TID (NOT KNOWN HOW LONG EXACTLY THE PATIENT HAD BEEN TAKING THE DRUG)
     Route: 048
     Dates: start: 2019

REACTIONS (2)
  - Duodenal ulcer haemorrhage [Recovering/Resolving]
  - Shock haemorrhagic [Recovered/Resolved]

NARRATIVE: CASE EVENT DATE: 20190714
